FAERS Safety Report 6761111-9 (Version None)
Quarter: 2010Q2

REPORT INFORMATION
  Report Type: 
  Country: None (occurrence: None)
  Receive Date: 20100608
  Receipt Date: 20100529
  Transmission Date: 20101027
  Serious: Yes (Other)
  Sender: FDA-Public Use
  Company Number: US-WYE-H15443310

PATIENT
  Sex: Female

DRUGS (1)
  1. PRISTIQ [Suspect]
     Dosage: UNKNOWN
     Route: 048

REACTIONS (4)
  - BLEEDING TIME PROLONGED [None]
  - CATARACT OPERATION COMPLICATION [None]
  - COAGULOPATHY [None]
  - VISUAL IMPAIRMENT [None]
